FAERS Safety Report 20423096 (Version 1)
Quarter: 2022Q1

REPORT INFORMATION
  Report Type: Spontaneous
  Country: PT (occurrence: None)
  Receive Date: 20220203
  Receipt Date: 20220203
  Transmission Date: 20220423
  Serious: Yes (Other)
  Sender: FDA-Public Use
  Company Number: 2022A044241

PATIENT
  Age: 63 Year
  Sex: Female

DRUGS (1)
  1. XIGDUO XR [Suspect]
     Active Substance: DAPAGLIFLOZIN PROPANEDIOL\METFORMIN HYDROCHLORIDE
     Indication: Type 2 diabetes mellitus
     Dosage: 2ID
     Route: 048
     Dates: start: 20220105, end: 20220110

REACTIONS (1)
  - Eczema [Recovered/Resolved]

NARRATIVE: CASE EVENT DATE: 20220105
